FAERS Safety Report 6338484-4 (Version None)
Quarter: 2009Q3

REPORT INFORMATION
  Report Type: 
  Country: None (occurrence: None)
  Receive Date: 20090901
  Receipt Date: 20090820
  Transmission Date: 20100115
  Serious: Yes (Hospitalization)
  Sender: FDA-Public Use
  Company Number: GXKR2009FR09502

PATIENT
  Age: 76 Year
  Sex: Female

DRUGS (7)
  1. SOTALOL HCL [Suspect]
     Dosage: 1 DF, BID, ORAL
     Route: 048
     Dates: start: 20081019
  2. ABILIFY [Concomitant]
  3. LOXAPINE SUCCINATE [Concomitant]
  4. HYDROXYZINE HCL [Concomitant]
  5. THERALENE (ALIMEMAZINE TARTRATE) [Concomitant]
  6. DILTIAZEM HYDROCHLORIDE [Concomitant]
  7. KARDEGIC (ACETYLSALICYLIC LYSINE) [Concomitant]

REACTIONS (3)
  - BRADYCARDIA [None]
  - PRODUCT OUTER PACKAGING ISSUE [None]
  - WRONG DRUG ADMINISTERED [None]
